FAERS Safety Report 23043382 (Version 1)
Quarter: 2023Q4

REPORT INFORMATION
  Report Type: Spontaneous
  Country: US (occurrence: US)
  Receive Date: 20231009
  Receipt Date: 20231009
  Transmission Date: 20240110
  Serious: No
  Sender: FDA-Public Use
  Company Number: US-BEH-2023163960

PATIENT
  Sex: Female

DRUGS (23)
  1. HIZENTRA [Suspect]
     Active Substance: HUMAN IMMUNOGLOBULIN G
     Indication: Chronic sinusitis
     Dosage: 14 GRAM, QW
     Route: 058
  2. BREZTRI [Concomitant]
     Active Substance: BUDESONIDE\FORMOTEROL\GLYCOPYRROLATE
  3. SUCRALFATE [Concomitant]
     Active Substance: SUCRALFATE
  4. MELATONIN [Concomitant]
     Active Substance: MELATONIN
  5. VITAMINS NOS [Concomitant]
     Active Substance: VITAMINS
  6. AMOXICILLIN [Concomitant]
     Active Substance: AMOXICILLIN
  7. PREDNISOLONE ACETATE [Concomitant]
     Active Substance: PREDNISOLONE ACETATE
  8. ZAFIRLUKAST [Concomitant]
     Active Substance: ZAFIRLUKAST
  9. SERTRALINE HYDROCHLORIDE [Concomitant]
     Active Substance: SERTRALINE HYDROCHLORIDE
  10. BREO ELLIPTA [Concomitant]
     Active Substance: FLUTICASONE FUROATE\VILANTEROL TRIFENATATE
  11. ABREVA [Concomitant]
     Active Substance: DOCOSANOL
  12. SIMVASTATIN [Concomitant]
     Active Substance: SIMVASTATIN
  13. ASPIRIN [Concomitant]
     Active Substance: ASPIRIN
  14. ATORVASTATIN [Concomitant]
     Active Substance: ATORVASTATIN
  15. BYSTOLIC [Concomitant]
     Active Substance: NEBIVOLOL HYDROCHLORIDE
  16. CALCIUM [Concomitant]
     Active Substance: CALCIUM
  17. GABAPENTIN [Concomitant]
     Active Substance: GABAPENTIN
  18. IRON [Concomitant]
     Active Substance: IRON
  19. LEVOTHYROXINE [Concomitant]
     Active Substance: LEVOTHYROXINE
  20. METFORMIN HYDROCHLORIDE [Concomitant]
     Active Substance: METFORMIN HYDROCHLORIDE
  21. MUCINEX [Concomitant]
     Active Substance: GUAIFENESIN
  22. PANTOPRAZOLE [Concomitant]
     Active Substance: PANTOPRAZOLE
  23. XOPENEX HFA [Concomitant]
     Active Substance: LEVALBUTEROL TARTRATE

REACTIONS (3)
  - Infusion site swelling [Recovered/Resolved]
  - Sinusitis [Unknown]
  - Memory impairment [Unknown]

NARRATIVE: CASE EVENT DATE: 20230101
